FAERS Safety Report 5682737-X (Version None)
Quarter: 2008Q1

REPORT INFORMATION
  Report Type: 
  Country: None (occurrence: None)
  Receive Date: 20080326
  Receipt Date: 20080326
  Transmission Date: 20080703
  Serious: No
  Sender: FDA-Public Use
  Company Number: None

PATIENT
  Age: 56 Year
  Sex: Female
  Weight: 52.6173 kg

DRUGS (1)
  1. PROAIR HFA [Suspect]
     Indication: BRONCHOSPASM
     Dosage: 2 PUFFS Q 4 HOURS INHAL
     Route: 055
     Dates: start: 20080325, end: 20080325

REACTIONS (2)
  - DRUG INEFFECTIVE [None]
  - PHARMACEUTICAL PRODUCT COMPLAINT [None]
